FAERS Safety Report 19895332 (Version 2)
Quarter: 2021Q4

REPORT INFORMATION
  Report Type: Spontaneous
  Country: GR (occurrence: GR)
  Receive Date: 20210929
  Receipt Date: 20211020
  Transmission Date: 20220304
  Serious: Yes (Other)
  Sender: FDA-Public Use
  Company Number: GR-ROCHE-2916098

PATIENT
  Sex: Male

DRUGS (2)
  1. POLIVY [Suspect]
     Active Substance: POLATUZUMAB VEDOTIN-PIIQ
     Indication: Diffuse large B-cell lymphoma
     Dosage: DATE OF 4TH SYSTEMIC TREATMENT AND LAST DOSE RECEIVED ON 01/JUN/2021
     Route: 065
     Dates: start: 20210401
  2. RITUXIMAB [Suspect]
     Active Substance: RITUXIMAB
     Indication: Diffuse large B-cell lymphoma
     Route: 065

REACTIONS (6)
  - Cellulitis [Recovered/Resolved]
  - Staphylococcal infection [Recovered/Resolved]
  - Abdominal lymphadenopathy [Recovered/Resolved]
  - Infection [Unknown]
  - Pyrexia [Unknown]
  - C-reactive protein increased [Unknown]

NARRATIVE: CASE EVENT DATE: 20210904
